FAERS Safety Report 4719829-5 (Version None)
Quarter: 2005Q3

REPORT INFORMATION
  Report Type: 
  Country: None (occurrence: None)
  Receive Date: 20050721
  Receipt Date: 20041124
  Transmission Date: 20060218
  Serious: Yes (Other)
  Sender: FDA-Public Use
  Company Number: US-GLAXOSMITHKLINE-A0535172A

PATIENT

DRUGS (1)
  1. AVANDIA [Suspect]

REACTIONS (1)
  - HYPOGLYCAEMIA [None]
